FAERS Safety Report 7817554-5 (Version None)
Quarter: 2011Q4

REPORT INFORMATION
  Report Type: 
  Country: None (occurrence: None)
  Receive Date: 20111017
  Receipt Date: 20111011
  Transmission Date: 20120403
  Serious: Yes (Other)
  Sender: FDA-Public Use
  Company Number: BR-ABBOTT-11P-020-0863580-00

PATIENT
  Sex: Female

DRUGS (3)
  1. SEROQUEL [Suspect]
     Indication: ANXIOLYTIC THERAPY
     Route: 048
     Dates: start: 20110501, end: 20110701
  2. LITHIUM [Suspect]
     Indication: ANXIOLYTIC THERAPY
     Dosage: DAILY
     Route: 048
     Dates: start: 20110501, end: 20110501
  3. VALPROATE SODIUM [Suspect]
     Indication: EPILEPSY
     Route: 048
     Dates: start: 20070101

REACTIONS (5)
  - THYROID DISORDER [None]
  - PSYCHOTIC DISORDER [None]
  - ABNORMAL BEHAVIOUR [None]
  - WEIGHT INCREASED [None]
  - ANXIETY [None]
